FAERS Safety Report 15983123 (Version 4)
Quarter: 2019Q2

REPORT INFORMATION
  Report Type: Spontaneous
  Country: US (occurrence: US)
  Receive Date: 20190219
  Receipt Date: 20190507
  Transmission Date: 20190711
  Serious: Yes (Other)
  Sender: FDA-Public Use
  Company Number: US-UNITED THERAPEUTICS-UNT-2019-002878

PATIENT
  Age: 51 Year
  Sex: Female
  Weight: 90.7 kg

DRUGS (5)
  1. TYVASO [Suspect]
     Active Substance: TREPROSTINIL
     Indication: PULMONARY ARTERIAL HYPERTENSION
     Dosage: 18 ?G, QID
     Dates: start: 20190206
  2. TYVASO [Suspect]
     Active Substance: TREPROSTINIL
     Dosage: UNK
  3. TYVASO [Suspect]
     Active Substance: TREPROSTINIL
     Dosage: UNK
  4. TYVASO [Suspect]
     Active Substance: TREPROSTINIL
     Dosage: 18-54 MICROGRAMS, QID
  5. TYVASO [Suspect]
     Active Substance: TREPROSTINIL
     Dosage: 6 ?G, UNK
     Dates: start: 20190213

REACTIONS (14)
  - Hypotension [Recovered/Resolved]
  - Headache [Recovered/Resolved]
  - Food allergy [Unknown]
  - Heart rate increased [Not Recovered/Not Resolved]
  - Flushing [Recovered/Resolved]
  - Feeling abnormal [Unknown]
  - Abdominal pain upper [Unknown]
  - Blood pressure increased [Recovered/Resolved]
  - Heart rate irregular [Recovered/Resolved]
  - Hot flush [Unknown]
  - Dizziness [Recovered/Resolved]
  - Night sweats [Unknown]
  - Palpitations [Recovered/Resolved]
  - Vomiting [Recovered/Resolved]

NARRATIVE: CASE EVENT DATE: 201902
